FAERS Safety Report 11744265 (Version 4)
Quarter: 2018Q4

REPORT INFORMATION
  Report Type: Spontaneous
  Country: US (occurrence: US)
  Receive Date: 20151116
  Receipt Date: 20181211
  Transmission Date: 20190204
  Serious: Yes (Hospitalization, Other)
  Sender: FDA-Public Use
  Company Number: US-DSJP-DSU-2015-118047

PATIENT

DRUGS (2)
  1. BENICAR [Suspect]
     Active Substance: OLMESARTAN MEDOXOMIL
     Indication: PRODUCT USED FOR UNKNOWN INDICATION
     Dosage: UNK
  2. AZOR [Suspect]
     Active Substance: AMLODIPINE BESYLATE\OLMESARTAN MEDOXOMIL
     Indication: HYPERTENSION
     Dosage: 10-40 MG, UNK
     Dates: start: 20080328, end: 20150427

REACTIONS (10)
  - Colectomy [Unknown]
  - Gastrointestinal haemorrhage [Unknown]
  - Constipation [Not Recovered/Not Resolved]
  - Oesophageal stenosis [Recovered/Resolved]
  - Cholecystitis [Unknown]
  - Pain [Unknown]
  - Hypotension [Unknown]
  - Clostridium difficile infection [Recovering/Resolving]
  - Acute kidney injury [Unknown]
  - Sprue-like enteropathy [Not Recovered/Not Resolved]

NARRATIVE: CASE EVENT DATE: 2009
